FAERS Safety Report 11981858 (Version 2)
Quarter: 2016Q2

REPORT INFORMATION
  Report Type: Report from Study
  Country: US (occurrence: US)
  Receive Date: 20160201
  Receipt Date: 20160407
  Transmission Date: 20160815
  Serious: No
  Sender: FDA-Public Use
  Company Number: PHEH2016US002283

PATIENT
  Sex: Male
  Weight: 49.7 kg

DRUGS (4)
  1. LEVITRA [Suspect]
     Active Substance: VARDENAFIL HYDROCHLORIDE TRIHYDRATE
     Indication: ERECTILE DYSFUNCTION
     Dosage: 20 MG, UNK
     Route: 048
  2. ACETYLSALICYLIC ACID [Suspect]
     Active Substance: ASPIRIN
     Indication: PRODUCT USED FOR UNKNOWN INDICATION
     Dosage: 81 MG, UNK
     Route: 048
  3. MOTRIN [Suspect]
     Active Substance: IBUPROFEN
     Indication: PAIN
     Dosage: 800 MG, UNK
     Route: 048
  4. GLEEVEC [Suspect]
     Active Substance: IMATINIB MESYLATE
     Indication: CHORDOMA
     Dosage: 400 MG, QD
     Route: 048

REACTIONS (3)
  - Muscle spasms [Recovered/Resolved]
  - Periorbital oedema [Recovered/Resolved]
  - Product use issue [Recovered/Resolved]
